FAERS Safety Report 7860262-5 (Version None)
Quarter: 2011Q4

REPORT INFORMATION
  Report Type: 
  Country: None (occurrence: None)
  Receive Date: 20111026
  Receipt Date: 20111019
  Transmission Date: 20120403
  Serious: Yes (Other)
  Sender: FDA-Public Use
  Company Number: AUR-APL-2011-05149

PATIENT
  Age: 67 Year
  Sex: Female
  Weight: 63 kg

DRUGS (9)
  1. NEXIUM [Concomitant]
  2. SIMVASTATIN [Suspect]
     Indication: BLOOD CHOLESTEROL
     Dosage: (20 MG,1 D),ORAL
     Route: 048
  3. ACETAMINOPHEN W/HYDROCODONE BITARTRATE (VICODIN) [Concomitant]
  4. BYSTOLIC [Concomitant]
  5. NEURONTIN [Suspect]
     Indication: NEUROPATHY PERIPHERAL
     Dosage: (900 MG,1 D),ORAL ; ORAL
     Route: 048
  6. CALTRATE 600 + VITAMIN D (CALCITE D) [Suspect]
     Indication: PRODUCT USED FOR UNKNOWN INDICATION
     Dosage: (1200 MG,1 D),ORAL
     Route: 048
     Dates: start: 20110101, end: 20110901
  7. AMLODIPINE BESYLATE [Concomitant]
  8. VAGIFEM [Concomitant]
  9. ASPIRIN [Concomitant]

REACTIONS (13)
  - LIP SWELLING [None]
  - SWOLLEN TONGUE [None]
  - LIP PAIN [None]
  - PAIN IN EXTREMITY [None]
  - CHEILITIS [None]
  - HYPERSENSITIVITY [None]
  - PROTEIN URINE PRESENT [None]
  - BLOOD CHOLESTEROL INCREASED [None]
  - RENAL CYST [None]
  - BENIGN SALIVARY GLAND NEOPLASM [None]
  - LIP DRY [None]
  - BURNING SENSATION [None]
  - BLOOD CALCIUM INCREASED [None]
